FAERS Safety Report 17688627 (Version 2)
Quarter: 2020Q2

REPORT INFORMATION
  Report Type: Spontaneous
  Country: TW (occurrence: TW)
  Receive Date: 20200421
  Receipt Date: 20200428
  Transmission Date: 20200714
  Serious: Yes (Hospitalization, Other)
  Sender: FDA-Public Use
  Company Number: TW-JNJFOC-20200417989

PATIENT
  Age: 89 Year
  Sex: Male

DRUGS (1)
  1. RIVAROXABAN [Suspect]
     Active Substance: RIVAROXABAN
     Indication: ACUTE MYOCARDIAL INFARCTION
     Route: 054

REACTIONS (2)
  - Cholecystitis acute [Recovered/Resolved]
  - Haemobilia [Recovered/Resolved]
